FAERS Safety Report 7785743-4 (Version None)
Quarter: 2011Q3

REPORT INFORMATION
  Report Type: 
  Country: None (occurrence: None)
  Receive Date: 20110929
  Receipt Date: 20110926
  Transmission Date: 20111222
  Serious: Yes (Death)
  Sender: FDA-Public Use
  Company Number: GB-NAPPMUNDI-GBR-2009-0005783

PATIENT
  Sex: Male

DRUGS (8)
  1. MORPHINE SULFATE [Suspect]
     Indication: HEAD INJURY
     Dosage: 80 UNK, UNK
     Route: 048
  2. OXCARBAZEPINE [Concomitant]
     Dosage: 300 MG, BID
  3. FLUOXETINE [Concomitant]
     Dosage: 60 MG, DAILY
  4. MS CONTIN [Suspect]
     Indication: HEAD INJURY
     Dosage: 20 MG, BID
     Route: 048
     Dates: start: 20060117, end: 20060118
  5. BENZODIAZEPINE DERIVATIVES [Concomitant]
     Dosage: UNK UNK, UNK
     Route: 048
  6. EPANUTIN                           /00017401/ [Concomitant]
     Dosage: 200 MG, BID
  7. CLOBAZAM [Concomitant]
     Dosage: 20 MG, BID
  8. TEMAZEPAM [Concomitant]
     Dosage: 20 MG, DAILY

REACTIONS (4)
  - ACCIDENTAL OVERDOSE [None]
  - TOXICITY TO VARIOUS AGENTS [None]
  - RESPIRATORY ARREST [None]
  - EPILEPSY [None]
